FAERS Safety Report 9052515 (Version 2)
Quarter: 2013Q4

REPORT INFORMATION
  Report Type: Spontaneous
  Country: FR (occurrence: FR)
  Receive Date: 20130207
  Receipt Date: 20131003
  Transmission Date: 20140711
  Serious: Yes (Life-Threatening, Hospitalization, Disabling, Other)
  Sender: FDA-Public Use
  Company Number: PHHY2008FR31026

PATIENT
  Age: 62 Year
  Sex: Male
  Weight: 69 kg

DRUGS (6)
  1. TASIGNA [Suspect]
     Indication: CHRONIC MYELOID LEUKAEMIA
     Dosage: 400 MG, BID
     Route: 048
     Dates: start: 20080530, end: 20090216
  2. TASIGNA [Suspect]
     Dosage: 200 MG, BID
     Route: 048
     Dates: start: 200907, end: 200911
  3. SIMVASTATIN [Concomitant]
  4. COVERSYL [Concomitant]
  5. OGAST [Concomitant]
  6. ASPIRINE [Concomitant]

REACTIONS (14)
  - Coronary artery stenosis [Recovered/Resolved]
  - Angina pectoris [Recovered/Resolved with Sequelae]
  - Dyspnoea [Recovered/Resolved with Sequelae]
  - Chest pain [Recovered/Resolved with Sequelae]
  - Exercise test [Recovered/Resolved with Sequelae]
  - Myocardial necrosis [Recovered/Resolved with Sequelae]
  - Electrocardiogram ST segment depression [Recovered/Resolved with Sequelae]
  - Blood creatine phosphokinase increased [Recovered/Resolved with Sequelae]
  - Blood creatine phosphokinase MB increased [Recovered/Resolved with Sequelae]
  - Myoglobin blood increased [Recovered/Resolved with Sequelae]
  - Troponin T increased [Recovered/Resolved with Sequelae]
  - Troponin I increased [Recovered/Resolved with Sequelae]
  - Heart rate decreased [Recovered/Resolved with Sequelae]
  - Pruritus [Recovered/Resolved with Sequelae]
